FAERS Safety Report 8773024 (Version 3)
Quarter: 2012Q4

REPORT INFORMATION
  Report Type: Report from Study
  Country: US (occurrence: US)
  Receive Date: 20120907
  Receipt Date: 20120924
  Transmission Date: 20130627
  Serious: Yes (Hospitalization)
  Sender: FDA-Public Use
  Company Number: US-ABBOTT-12P-163-0956929-00

PATIENT
  Age: 42 Year
  Sex: Female

DRUGS (20)
  1. HUMIRA [Suspect]
     Indication: CROHN^S DISEASE
     Dates: start: 20120627
  2. HUMIRA [Suspect]
     Dates: start: 20120712
  3. RITALIN [Concomitant]
     Indication: ATTENTION DEFICIT/HYPERACTIVITY DISORDER
  4. PROZAC [Concomitant]
     Indication: DEPRESSION
  5. ABILIFY [Concomitant]
     Indication: DEPRESSION
     Dosage: At bedtime
  6. XANAX [Concomitant]
     Indication: ANXIETY
  7. REMERON [Concomitant]
     Indication: DEPRESSION
     Dosage: At bedtime
  8. ENTOCORT [Concomitant]
     Indication: PRODUCT USED FOR UNKNOWN INDICATION
     Dosage: 2 pills daily
  9. PENTASA [Concomitant]
     Indication: PRODUCT USED FOR UNKNOWN INDICATION
  10. ADVAIR [Concomitant]
     Indication: PRODUCT USED FOR UNKNOWN INDICATION
     Dosage: 250/50 2 puffs daily
  11. ASPIRIN [Concomitant]
     Indication: PRODUCT USED FOR UNKNOWN INDICATION
     Dosage: 81mg daily
  12. ZANAFLEX [Concomitant]
     Indication: PRODUCT USED FOR UNKNOWN INDICATION
  13. LASIX [Concomitant]
     Indication: PRODUCT USED FOR UNKNOWN INDICATION
     Dosage: 2 tablets in AM, 1 tablet in PM
  14. OXYCODONE [Concomitant]
     Indication: PAIN
     Dosage: PRN
  15. OXYCODONE [Concomitant]
     Indication: BREAKTHROUGH PAIN
     Dosage: PRN
  16. LYRICA [Concomitant]
     Indication: PAIN
  17. NEURONTIN [Concomitant]
     Indication: PAIN
  18. POTASSIUM [Concomitant]
     Indication: PRODUCT USED FOR UNKNOWN INDICATION
     Dosage: 10mg daily
  19. PROMETHAZINE [Concomitant]
     Indication: NAUSEA
     Dosage: PRN
  20. PREDNISONE [Concomitant]
     Dosage: 2 TABLETS DAILY
     Route: 048

REACTIONS (11)
  - Small intestinal obstruction [Recovered/Resolved]
  - Nausea [Not Recovered/Not Resolved]
  - Abdominal pain [Unknown]
  - Injection site pain [Not Recovered/Not Resolved]
  - Injection site bruising [Recovering/Resolving]
  - Abdominal pain [Not Recovered/Not Resolved]
  - Diarrhoea [Not Recovered/Not Resolved]
  - Oedema peripheral [Not Recovered/Not Resolved]
  - Diarrhoea [Recovering/Resolving]
  - Vomiting [Recovering/Resolving]
  - Eructation [Not Recovered/Not Resolved]
